FAERS Safety Report 7766032-0 (Version None)
Quarter: 2011Q3

REPORT INFORMATION
  Report Type: 
  Country: None (occurrence: None)
  Receive Date: 20110921
  Receipt Date: 20110906
  Transmission Date: 20111222
  Serious: Yes (Hospitalization, Other)
  Sender: FDA-Public Use
  Company Number: JP-WATSON-2011-14897

PATIENT
  Age: 74 Year
  Sex: Female

DRUGS (3)
  1. FLUOROURACIL [Suspect]
     Indication: COLON CANCER RECURRENT
     Dosage: 400 MG/M2 (RAPID IV INJECTION ON DAY 1)
     Route: 042
  2. FLUOROURACIL [Suspect]
     Dosage: 2400 MG/M2 (48-HR INFUSION)
     Route: 042
  3. OXALIPLATIN [Suspect]
     Indication: COLON CANCER RECURRENT
     Dosage: 85 MG/M2 (ON DAY 1)
     Route: 065

REACTIONS (6)
  - VOMITING [None]
  - TREMOR [None]
  - HYPERAMMONAEMIA [None]
  - CONFUSIONAL STATE [None]
  - CONVULSION [None]
  - ENCEPHALOPATHY [None]
